FAERS Safety Report 6148830-2 (Version None)
Quarter: 2009Q2

REPORT INFORMATION
  Report Type: 
  Country: None (occurrence: None)
  Receive Date: 20090406
  Receipt Date: 20090324
  Transmission Date: 20091009
  Serious: Yes (Hospitalization)
  Sender: FDA-Public Use
  Company Number: 005965

PATIENT
  Sex: Female

DRUGS (1)
  1. PLETAL [Suspect]
     Dosage: 100 MG ORAL
     Route: 048

REACTIONS (1)
  - HYPERSENSITIVITY [None]
